FAERS Safety Report 7594877-9 (Version None)
Quarter: 2011Q2

REPORT INFORMATION
  Report Type: 
  Country: None (occurrence: None)
  Receive Date: 20110615
  Receipt Date: 20110413
  Transmission Date: 20111010
  Serious: Yes (Hospitalization)
  Sender: FDA-Public Use
  Company Number: WAES 1104USA02023

PATIENT
  Age: 90 Year
  Sex: Male

DRUGS (2)
  1. COREG [Suspect]
  2. COZAAR [Suspect]
     Dosage: PO
     Route: 048

REACTIONS (2)
  - NERVOUS SYSTEM DISORDER [None]
  - ANGIOEDEMA [None]
